FAERS Safety Report 4759871-1 (Version None)
Quarter: 2005Q3

REPORT INFORMATION
  Report Type: 
  Country: None (occurrence: None)
  Receive Date: 20050831
  Receipt Date: 20050831
  Transmission Date: 20060218
  Serious: No
  Sender: FDA-Public Use
  Company Number: None

PATIENT

DRUGS (1)
  1. NASAL DECONGESTANT PE CVS -(PHENYLEPHRINE HCL) [Suspect]
     Indication: NASAL CONGESTION
     Dosage: 1 EV. 4 HRS ORALLY
     Route: 048

REACTIONS (1)
  - MEDICATION ERROR [None]
